FAERS Safety Report 12278189 (Version 4)
Quarter: 2018Q3

REPORT INFORMATION
  Report Type: Spontaneous
  Country: US (occurrence: US)
  Receive Date: 20160418
  Receipt Date: 20180920
  Transmission Date: 20181010
  Serious: Yes (Hospitalization)
  Sender: FDA-Public Use
  Company Number: US-DSJP-DSU-2015-127171

PATIENT

DRUGS (7)
  1. SKELAXIN [Concomitant]
     Active Substance: METAXALONE
     Indication: PAIN
     Dosage: 500 MG, AS NEEDED
     Route: 048
  2. METAXALONE. [Concomitant]
     Active Substance: METAXALONE
     Indication: PAIN
     Dosage: UNK
  3. BENICAR [Suspect]
     Active Substance: OLMESARTAN MEDOXOMIL
     Indication: HYPERTENSION
     Dosage: UNK
     Dates: start: 20100514
  4. METFORMIN [Concomitant]
     Active Substance: METFORMIN HYDROCHLORIDE
     Indication: DIABETES MELLITUS
     Dosage: 1000 MG, BID
     Route: 048
  5. BENICAR [Suspect]
     Active Substance: OLMESARTAN MEDOXOMIL
     Dosage: 40 MG, QD
     Route: 048
     Dates: end: 201306
  6. SIMVASTATIN. [Concomitant]
     Active Substance: SIMVASTATIN
     Indication: BLOOD CHOLESTEROL INCREASED
     Dosage: 10 MG, QD
  7. TRAMADOL. [Concomitant]
     Active Substance: TRAMADOL
     Indication: PAIN
     Dosage: 50 MG, 6HRS AS NEEDED
     Route: 048

REACTIONS (5)
  - Haemorrhoids [Unknown]
  - Cholecystitis chronic [Recovered/Resolved]
  - Anal fissure [Recovered/Resolved]
  - Sprue-like enteropathy [Recovering/Resolving]
  - Transaminases increased [Recovering/Resolving]

NARRATIVE: CASE EVENT DATE: 20120924
